FAERS Safety Report 10043191 (Version 3)
Quarter: 2014Q2

REPORT INFORMATION
  Report Type: Spontaneous
  Country: CN (occurrence: CN)
  Receive Date: 20140328
  Receipt Date: 20140508
  Transmission Date: 20141212
  Serious: Yes (Death, Other)
  Sender: FDA-Public Use
  Company Number: CN-MERCK-1403CHN013091

PATIENT
  Sex: 0

DRUGS (3)
  1. CANCIDAS [Suspect]
     Indication: ANTIFUNGAL TREATMENT
     Dosage: LOADING DOSE
     Route: 041
  2. CANCIDAS [Suspect]
     Indication: EVIDENCE BASED TREATMENT
     Dosage: MAINTENANCE DOSE
     Route: 041
  3. CANCIDAS [Suspect]
     Dosage: CASES OF CHILDREN USED LOADING/MAINTENANCE DOSE THAT WAS REDUCED BY HALF OR DECRESED
     Route: 041

REACTIONS (2)
  - General symptom [Fatal]
  - Drug ineffective [Fatal]
